FAERS Safety Report 14604688 (Version 1)
Quarter: 2018Q1

REPORT INFORMATION
  Report Type: Spontaneous
  Country: US (occurrence: US)
  Receive Date: 20180306
  Receipt Date: 20180306
  Transmission Date: 20180509
  Serious: Yes (Hospitalization)
  Sender: FDA-Public Use
  Company Number: US-INDIVIOR LIMITED-INDV-109377-2018

PATIENT
  Age: 55 Year
  Sex: Female

DRUGS (3)
  1. SUBUTEX [Suspect]
     Active Substance: BUPRENORPHINE HYDROCHLORIDE
     Indication: DRUG DEPENDENCE
     Dosage: 16 MG, ONE TIME A DAY
     Route: 060
     Dates: start: 2016, end: 2016
  2. SUBOXONE [Suspect]
     Active Substance: BUPRENORPHINE HYDROCHLORIDE\NALOXONE HYDROCHLORIDE
     Dosage: 16 MG, DAILY
     Route: 060
     Dates: start: 2016
  3. SUBOXONE [Suspect]
     Active Substance: BUPRENORPHINE HYDROCHLORIDE\NALOXONE HYDROCHLORIDE
     Indication: DRUG DEPENDENCE
     Dosage: TWO SUBOXONE 8 MG FILMS DAILY
     Route: 060
     Dates: start: 2013, end: 2016

REACTIONS (7)
  - Joint injury [Not Recovered/Not Resolved]
  - Drug dose omission [Unknown]
  - Procedural pain [Unknown]
  - Crying [Unknown]
  - Vaginal haemorrhage [Not Recovered/Not Resolved]
  - Back disorder [Not Recovered/Not Resolved]
  - Haemarthrosis [Unknown]

NARRATIVE: CASE EVENT DATE: 2016
